FAERS Safety Report 15686438 (Version 1)
Quarter: 2018Q4

REPORT INFORMATION
  Report Type: Report from Study
  Country: US (occurrence: US)
  Receive Date: 20181204
  Receipt Date: 20181204
  Transmission Date: 20190205
  Serious: Yes (Other)
  Sender: FDA-Public Use
  Company Number: US-PFIZER INC-2018468275

PATIENT
  Age: 58 Year
  Sex: Male

DRUGS (1)
  1. SUTENT [Suspect]
     Active Substance: SUNITINIB MALATE
     Indication: RENAL CELL CARCINOMA
     Dosage: 50 MG, CYCLIC (DAILY FOR 28 DAYS OF 42 DAY CYCLE)
     Route: 048
     Dates: start: 20181105

REACTIONS (8)
  - Nausea [Unknown]
  - Fatigue [Unknown]
  - Cough [Unknown]
  - Abdominal discomfort [Unknown]
  - Yellow skin [Unknown]
  - Mucosal inflammation [Unknown]
  - Thrombosis [Unknown]
  - Muscle spasms [Unknown]

NARRATIVE: CASE EVENT DATE: 201811
